FAERS Safety Report 9520098 (Version 1)
Quarter: 2013Q3

REPORT INFORMATION
  Report Type: Report from Study
  Country: BR (occurrence: BR)
  Receive Date: 20130912
  Receipt Date: 20130912
  Transmission Date: 20140515
  Serious: Yes (Death)
  Sender: FDA-Public Use
  Company Number: PHHY2013BR101051

PATIENT
  Age: 84 Year
  Sex: Female

DRUGS (2)
  1. GALVUS [Suspect]
     Indication: DIABETES MELLITUS
     Dosage: 1 UKN (1000MG), DAILY
     Dates: start: 20130115
  2. DIOVAN AMLO FIX [Suspect]
     Indication: HYPERTENSION
     Dosage: 1 UKN (160/5MG), DAILY
     Dates: start: 20130115

REACTIONS (1)
  - Death [Fatal]
